FAERS Safety Report 8243624-6 (Version None)
Quarter: 2012Q1

REPORT INFORMATION
  Report Type: 
  Country: None (occurrence: None)
  Receive Date: 20120329
  Receipt Date: 20120320
  Transmission Date: 20120608
  Serious: Yes (Other)
  Sender: FDA-Public Use
  Company Number: CA-JNJFOC-20120310853

PATIENT
  Sex: Female

DRUGS (9)
  1. CALCIUM CARBONATE [Concomitant]
     Route: 065
  2. HYDROCHLOROTHIAZIDE [Concomitant]
     Route: 065
  3. MULTI-VITAMINS [Concomitant]
     Route: 065
  4. CRESTOR [Concomitant]
     Route: 065
  5. REMICADE [Suspect]
     Indication: ANKYLOSING SPONDYLITIS
     Route: 042
     Dates: start: 20110131
  6. VITAMIN D [Concomitant]
     Route: 065
  7. MS CONTIN [Concomitant]
     Route: 065
  8. DIOVAN [Concomitant]
     Route: 065
  9. PANTOPRAZOLE SODIUM [Concomitant]
     Route: 065

REACTIONS (3)
  - URINARY TRACT INFECTION [None]
  - SMALL INTESTINAL HAEMORRHAGE [None]
  - RASH PRURITIC [None]
